FAERS Safety Report 5136908-1 (Version None)
Quarter: 2006Q4

REPORT INFORMATION
  Report Type: 
  Country: None (occurrence: None)
  Receive Date: 20061023
  Receipt Date: 20061011
  Transmission Date: 20070319
  Serious: Yes (Hospitalization)
  Sender: FDA-Public Use
  Company Number: 2006109038

PATIENT
  Age: 58 Year
  Sex: Female
  Weight: 82.3 kg

DRUGS (4)
  1. AMLODIPINE [Suspect]
     Indication: BLOOD PRESSURE
     Dosage: 5 MG (5 MG, FREQUENCY: DAILY INTERVALP EVERY DAY), ORAL
     Route: 048
     Dates: start: 20020101
  2. ATENOLOL [Concomitant]
  3. LEVOTHYROXINE SODIUM [Concomitant]
  4. CLIMESE (ESTRADIOL VALERATE, NORETHISTERONE) [Concomitant]

REACTIONS (1)
  - EYE DISORDER [None]
